FAERS Safety Report 24586379 (Version 2)
Quarter: 2025Q1

REPORT INFORMATION
  Report Type: Spontaneous
  Country: PK (occurrence: PK)
  Receive Date: 20241106
  Receipt Date: 20250112
  Transmission Date: 20250408
  Serious: Yes (Other)
  Sender: JOHNSON AND JOHNSON
  Company Number: PK-JNJFOC-20241105185

PATIENT
  Age: 24 Year
  Sex: Female
  Weight: 41 kg

DRUGS (5)
  1. BEDAQUILINE [Suspect]
     Active Substance: BEDAQUILINE
     Indication: Tuberculosis
     Route: 048
     Dates: start: 20240805, end: 20241030
  2. PRETOMANID [Suspect]
     Active Substance: PRETOMANID
     Indication: Tuberculosis
     Route: 048
     Dates: start: 20240805, end: 20241030
  3. LINEZOLID [Suspect]
     Active Substance: LINEZOLID
     Indication: Tuberculosis
     Route: 048
     Dates: start: 20240805, end: 20241026
  4. PYRIDOXINE [Concomitant]
     Active Substance: PYRIDOXINE
     Route: 048
     Dates: start: 20240805
  5. PYRIDOXINE [Concomitant]
     Active Substance: PYRIDOXINE
     Dates: start: 20241030

REACTIONS (1)
  - Optic neuropathy [Recovered/Resolved]

NARRATIVE: CASE EVENT DATE: 20241016
